FAERS Safety Report 20773743 (Version 1)
Quarter: 2022Q2

REPORT INFORMATION
  Report Type: Spontaneous
  Country: DE (occurrence: DE)
  Receive Date: 20220502
  Receipt Date: 20220502
  Transmission Date: 20220720
  Serious: Yes (Other)
  Sender: FDA-Public Use
  Company Number: DE-EMBRYOTOX-202118836

PATIENT
  Age: 6 Month
  Sex: Female
  Weight: 2.68 kg

DRUGS (2)
  1. VALPROIC ACID [Suspect]
     Active Substance: VALPROIC ACID
     Indication: Product used for unknown indication
     Dosage: 300 [MG/D ]
     Route: 064
     Dates: start: 20190707, end: 20200330
  2. FOLIC ACID [Concomitant]
     Active Substance: FOLIC ACID
     Indication: Product used for unknown indication
     Dosage: 5 [MG/D ]
     Route: 064
     Dates: start: 20190707, end: 20200330

REACTIONS (5)
  - Growth retardation [Unknown]
  - Cerebral ventricle dilatation [Unknown]
  - Developmental delay [Unknown]
  - Feeding disorder [Not Recovered/Not Resolved]
  - Foetal exposure during pregnancy [Unknown]
